FAERS Safety Report 7879111-4 (Version None)
Quarter: 2011Q4

REPORT INFORMATION
  Report Type: 
  Country: None (occurrence: None)
  Receive Date: 20111101
  Receipt Date: 20111021
  Transmission Date: 20120403
  Serious: Yes (Hospitalization)
  Sender: FDA-Public Use
  Company Number: US-BAYER-2011-048689

PATIENT
  Age: 23 Year
  Sex: Female
  Weight: 102.4 kg

DRUGS (14)
  1. EFFEXOR [Concomitant]
  2. AZITHROMYCIN [Concomitant]
  3. LOVENOX [Concomitant]
  4. LEXAPRO [Concomitant]
  5. TYLENOL-500 [Concomitant]
     Indication: PAIN
  6. XANAX [Concomitant]
  7. TORADOL [Concomitant]
     Indication: PAIN
  8. ELAVIL [Concomitant]
  9. COUMADIN [Concomitant]
     Dosage: 5 MG, UNK
  10. YASMIN [Suspect]
     Dosage: UNK
     Dates: start: 20050101, end: 20090101
  11. TRAMADOL HCL [Concomitant]
  12. DROSPIRENONE AND ETHINYL ESTRADIOL [Suspect]
     Dosage: UNK
     Dates: start: 20050101, end: 20090101
  13. DROSPIRENONE AND ETHINYL ESTRADIOL [Suspect]
  14. PAXIL [Concomitant]

REACTIONS (5)
  - PAIN [None]
  - DEPRESSION [None]
  - MENTAL DISORDER [None]
  - PULMONARY EMBOLISM [None]
  - DEEP VEIN THROMBOSIS [None]
